FAERS Safety Report 9311807 (Version 1)
Quarter: 2013Q2

REPORT INFORMATION
  Report Type: Spontaneous
  Country: US (occurrence: US)
  Receive Date: 20130528
  Receipt Date: 20130528
  Transmission Date: 20140414
  Serious: Yes (Hospitalization, Other)
  Sender: FDA-Public Use
  Company Number: PHEH2013US011207

PATIENT
  Age: 87 Year
  Sex: Female

DRUGS (13)
  1. EXELON PATCH [Suspect]
     Indication: DEMENTIA
     Dosage: 4.6 MG, QD
     Route: 062
     Dates: start: 20130415, end: 20130520
  2. SYNTHROID [Concomitant]
  3. ZYRTEC [Concomitant]
  4. CALCIUM + VITAMIN D [Concomitant]
  5. SIMETHICONE [Concomitant]
  6. SENOKOT                                 /USA/ [Concomitant]
  7. ALBUTEROL [Concomitant]
  8. LASIX [Concomitant]
  9. MULTIVITAMIN PREPARATIONS WITH OR W/O MINERAL [Concomitant]
  10. FISH OIL [Concomitant]
  11. FORTICAL /USA/ [Concomitant]
  12. PATADAY [Concomitant]
  13. KLOR-CON [Concomitant]

REACTIONS (13)
  - Fall [Unknown]
  - Memory impairment [Unknown]
  - Pelvic fracture [Unknown]
  - Head injury [Unknown]
  - Contusion [Unknown]
  - Scratch [Unknown]
  - Haemorrhage [Unknown]
  - Abnormal behaviour [Unknown]
  - Urinary tract infection [Unknown]
  - Fatigue [Unknown]
  - Dizziness [Unknown]
  - Asthenia [Unknown]
  - Confusional state [Unknown]
